FAERS Safety Report 23813497 (Version 1)
Quarter: 2024Q2

REPORT INFORMATION
  Report Type: Spontaneous
  Country: JP (occurrence: JP)
  Receive Date: 20240503
  Receipt Date: 20240503
  Transmission Date: 20240716
  Serious: Yes (Other)
  Sender: FDA-Public Use
  Company Number: JP-BAUSCH-BL-2024-003796

PATIENT
  Age: 9 Decade
  Sex: Male

DRUGS (1)
  1. BRODALUMAB [Suspect]
     Active Substance: BRODALUMAB
     Indication: Palmoplantar pustulosis
     Route: 058
     Dates: start: 202310

REACTIONS (2)
  - Loss of consciousness [Unknown]
  - Drug ineffective [Unknown]
